FAERS Safety Report 6688311-0 (Version None)
Quarter: 2010Q2

REPORT INFORMATION
  Report Type: 
  Country: None (occurrence: None)
  Receive Date: 20100420
  Receipt Date: 20100407
  Transmission Date: 20101027
  Serious: Yes (Other)
  Sender: FDA-Public Use
  Company Number: PHHY2010JP21582

PATIENT
  Sex: Male

DRUGS (1)
  1. ZOMETA [Suspect]
     Indication: CARCINOMA IN SITU OF SKIN
     Dosage: 4 MG, UNK
     Route: 042

REACTIONS (2)
  - ORAL SURGERY [None]
  - OSTEONECROSIS [None]
